FAERS Safety Report 20311728 (Version 1)
Quarter: 2022Q1

REPORT INFORMATION
  Report Type: Spontaneous
  Country: US (occurrence: US)
  Receive Date: 20220108
  Receipt Date: 20220108
  Transmission Date: 20220423
  Serious: Yes (Other)
  Sender: FDA-Public Use
  Company Number: US-TARO-2022TAR00032

PATIENT
  Age: 69 Year
  Sex: Male

DRUGS (1)
  1. IBUPROFEN [Suspect]
     Active Substance: IBUPROFEN
     Indication: Arthralgia
     Dosage: 1200-1800 MG, DAILY
     Route: 065

REACTIONS (4)
  - Glomerulonephritis minimal lesion [Not Recovered/Not Resolved]
  - Abnormal organ growth [Unknown]
  - Lymphoproliferative disorder [Unknown]
  - Tubulointerstitial nephritis [Unknown]
